FAERS Safety Report 12277441 (Version 2)
Quarter: 2016Q2

REPORT INFORMATION
  Report Type: Report from Study
  Country: BR (occurrence: BR)
  Receive Date: 20160418
  Receipt Date: 20160418
  Transmission Date: 20160815
  Serious: Yes (Other)
  Sender: FDA-Public Use
  Company Number: BR-ABBVIE-16K-020-1602908-00

PATIENT
  Sex: Female

DRUGS (1)
  1. HUMIRA [Suspect]
     Active Substance: ADALIMUMAB
     Indication: CROHN^S DISEASE
     Route: 058
     Dates: start: 20110112

REACTIONS (9)
  - Injection site discomfort [Unknown]
  - Drug effect incomplete [Unknown]
  - Impaired quality of life [Unknown]
  - Crohn^s disease [Unknown]
  - Gastrointestinal inflammation [Recovered/Resolved]
  - Injection related reaction [Unknown]
  - Asthenia [Unknown]
  - Pruritus generalised [Unknown]
  - Injection site pruritus [Unknown]
